FAERS Safety Report 21568074 (Version 1)
Quarter: 2022Q4

REPORT INFORMATION
  Report Type: Spontaneous
  Country: US (occurrence: None)
  Receive Date: 20221107
  Receipt Date: 20221107
  Transmission Date: 20230113
  Serious: Yes (Hospitalization)
  Sender: FDA-Public Use
  Company Number: None

PATIENT
  Age: 69 Year
  Sex: Male
  Weight: 59.87 kg

DRUGS (2)
  1. APIXABAN [Suspect]
     Active Substance: APIXABAN
     Indication: Peripheral vascular disorder
     Dosage: 5 MG EVERY DAY PO
     Route: 048
     Dates: start: 20220321, end: 20220629
  2. CLOPIDOGREL [Suspect]
     Active Substance: CLOPIDOGREL BISULFATE

REACTIONS (1)
  - Microcytic anaemia [None]

NARRATIVE: CASE EVENT DATE: 20220628
